FAERS Safety Report 25200840 (Version 2)
Quarter: 2025Q2

REPORT INFORMATION
  Report Type: Spontaneous
  Country: CN (occurrence: CN)
  Receive Date: 20250415
  Receipt Date: 20250418
  Transmission Date: 20250717
  Serious: Yes (Hospitalization, Other)
  Sender: JOHNSON AND JOHNSON
  Company Number: CN-BAYER-2025A046639

PATIENT
  Age: 86 Year
  Sex: Male
  Weight: 76 kg

DRUGS (2)
  1. XARELTO [Suspect]
     Active Substance: RIVAROXABAN
     Indication: Atrial fibrillation
     Dosage: 15 MG, QD
     Route: 048
     Dates: start: 20220401, end: 20250215
  2. XARELTO [Suspect]
     Active Substance: RIVAROXABAN
     Indication: Cerebral infarction

REACTIONS (28)
  - Gastrointestinal haemorrhage [Recovering/Resolving]
  - Melaena [Recovering/Resolving]
  - Duodenal ulcer [Unknown]
  - White blood cell count increased [Unknown]
  - Lymphocyte percentage decreased [Not Recovered/Not Resolved]
  - Lymphocyte count decreased [Unknown]
  - Neutrophil percentage increased [Not Recovered/Not Resolved]
  - Neutrophil count increased [Unknown]
  - Eosinophil percentage decreased [Unknown]
  - Eosinophil count decreased [Unknown]
  - C-reactive protein increased [Not Recovered/Not Resolved]
  - Haemoglobin decreased [Not Recovered/Not Resolved]
  - Prothrombin time prolonged [Unknown]
  - International normalised ratio increased [Unknown]
  - Prothrombin time ratio decreased [Unknown]
  - Blood fibrinogen decreased [Unknown]
  - Protein total decreased [Unknown]
  - AST/ALT ratio abnormal [Unknown]
  - High density lipoprotein decreased [Unknown]
  - Blood glucose increased [Unknown]
  - Blood urea increased [Unknown]
  - Carbon dioxide decreased [Unknown]
  - Blood potassium decreased [Unknown]
  - Blood calcium decreased [Unknown]
  - Blood phosphorus decreased [Unknown]
  - Blood osmolarity increased [Unknown]
  - Chronic gastritis [Unknown]
  - Monocyte count increased [Unknown]

NARRATIVE: CASE EVENT DATE: 20250212
